FAERS Safety Report 7325598-5 (Version None)
Quarter: 2011Q1

REPORT INFORMATION
  Report Type: 
  Country: None (occurrence: None)
  Receive Date: 20110302
  Receipt Date: 20110222
  Transmission Date: 20110831
  Serious: Yes (Other)
  Sender: FDA-Public Use
  Company Number: US-ELI_LILLY_AND_COMPANY-US201102006342

PATIENT
  Sex: Female

DRUGS (3)
  1. LANTUS [Concomitant]
     Dosage: 30 U, DAILY (1/D)
  2. HUMALOG [Suspect]
     Dosage: UNK, AS NEEDED
     Dates: start: 20040101
  3. HUMALOG [Suspect]
     Indication: DIABETES MELLITUS
     Dosage: UNK, AS NEEDED

REACTIONS (5)
  - KETOACIDOSIS [None]
  - DRUG INEFFECTIVE [None]
  - STRESS [None]
  - ARTHROPATHY [None]
  - BLOOD GLUCOSE INCREASED [None]
